FAERS Safety Report 8057473-5 (Version None)
Quarter: 2012Q1

REPORT INFORMATION
  Report Type: 
  Country: None (occurrence: None)
  Receive Date: 20120119
  Receipt Date: 20120111
  Transmission Date: 20120608
  Serious: Yes (Hospitalization, Disabling, Other)
  Sender: FDA-Public Use
  Company Number: US-MERCK-1106USA03368

PATIENT
  Age: 64 Year
  Sex: Female
  Weight: 66 kg

DRUGS (5)
  1. FOSAMAX [Suspect]
     Indication: OSTEOPOROSIS
     Route: 048
     Dates: start: 20000601, end: 20080201
  2. FOSAMAX [Suspect]
     Route: 048
     Dates: start: 20080301, end: 20101201
  3. FOSAMAX [Suspect]
     Indication: OSTEOPENIA
     Route: 048
     Dates: start: 20000601, end: 20080201
  4. FOSAMAX [Suspect]
     Route: 048
     Dates: start: 20080301, end: 20101201
  5. CALCIUM (UNSPECIFIED) AND VITAMIN D (UNSPECIFIED) [Concomitant]
     Route: 065
     Dates: start: 20000601

REACTIONS (21)
  - SCOLIOSIS [None]
  - URINARY TRACT INFECTION [None]
  - SPINAL OSTEOARTHRITIS [None]
  - FEMUR FRACTURE [None]
  - OSTEOPOROSIS [None]
  - INJURY [None]
  - MENISCUS LESION [None]
  - RHEUMATOID ARTHRITIS [None]
  - PATELLOFEMORAL PAIN SYNDROME [None]
  - BUNDLE BRANCH BLOCK LEFT [None]
  - FRACTURE NONUNION [None]
  - RHINITIS ALLERGIC [None]
  - FOOT FRACTURE [None]
  - FALL [None]
  - IMPAIRED HEALING [None]
  - OVARIAN DISORDER [None]
  - INTERVERTEBRAL DISC PROTRUSION [None]
  - LOW TURNOVER OSTEOPATHY [None]
  - ANKLE FRACTURE [None]
  - SCIATICA [None]
  - INTERVERTEBRAL DISC DEGENERATION [None]
